FAERS Safety Report 10781576 (Version 1)
Quarter: 2015Q1

REPORT INFORMATION
  Report Type: Spontaneous
  Country: IT (occurrence: IT)
  Receive Date: 20150210
  Receipt Date: 20150210
  Transmission Date: 20150721
  Serious: Yes (Other)
  Sender: FDA-Public Use
  Company Number: IT-ASTRAZENECA-2015SE09831

PATIENT
  Age: 18288 Day
  Sex: Male

DRUGS (2)
  1. ESOMEPRAZOLE [Suspect]
     Active Substance: ESOMEPRAZOLE
     Indication: GASTRITIS
     Route: 048
     Dates: start: 20150120, end: 20150126
  2. SOY MILK [Suspect]
     Active Substance: SOYBEAN
     Route: 048
     Dates: start: 20150126

REACTIONS (3)
  - Generalised erythema [Recovering/Resolving]
  - Pruritus [Recovering/Resolving]
  - Laryngeal oedema [Recovering/Resolving]

NARRATIVE: CASE EVENT DATE: 20150126
